FAERS Safety Report 15216141 (Version 1)
Quarter: 2018Q3

REPORT INFORMATION
  Report Type: Spontaneous
  Country: US (occurrence: US)
  Receive Date: 20180730
  Receipt Date: 20180730
  Transmission Date: 20181010
  Serious: Yes (Hospitalization)
  Sender: FDA-Public Use
  Company Number: PHHY2018US052463

PATIENT
  Sex: Female
  Weight: .97 kg

DRUGS (1)
  1. BETAMETHASONE. [Suspect]
     Active Substance: BETAMETHASONE
     Indication: FOETAL EXPOSURE DURING PREGNANCY
     Dosage: MATERNAL DOSE: 12 MG, UNK
     Route: 064

REACTIONS (5)
  - Low birth weight baby [Unknown]
  - Premature baby [Unknown]
  - Neonatal respiratory distress syndrome [Unknown]
  - Bronchopulmonary dysplasia [Unknown]
  - Foetal exposure during pregnancy [Unknown]
